FAERS Safety Report 14509210 (Version 1)
Quarter: 2018Q1

REPORT INFORMATION
  Report Type: Spontaneous
  Country: US (occurrence: US)
  Receive Date: 20180209
  Receipt Date: 20180209
  Transmission Date: 20180509
  Serious: Yes (Death, Life-Threatening, Disabling, Other)
  Sender: FDA-Public Use
  Company Number: US-TEVA-2018-US-856173

PATIENT
  Sex: Female

DRUGS (1)
  1. AMIODARONE [Suspect]
     Active Substance: AMIODARONE
     Indication: ATRIAL FIBRILLATION

REACTIONS (12)
  - Renal impairment [Unknown]
  - Loss of personal independence in daily activities [Unknown]
  - Visual acuity reduced [Unknown]
  - Oedema [Unknown]
  - Blindness [Fatal]
  - Ocular hyperaemia [Unknown]
  - Vision blurred [Unknown]
  - Off label use [Unknown]
  - Dyspnoea [Fatal]
  - Eye irritation [Unknown]
  - Chest pain [Unknown]
  - Adverse event [Unknown]

NARRATIVE: CASE EVENT DATE: 201510
